FAERS Safety Report 18980891 (Version 1)
Quarter: 2021Q1

REPORT INFORMATION
  Report Type: Spontaneous
  Country: US (occurrence: US)
  Receive Date: 20210306
  Receipt Date: 20210306
  Transmission Date: 20210420
  Serious: Yes (Hospitalization)
  Sender: FDA-Public Use
  Company Number: None

PATIENT
  Sex: Female
  Weight: 129.04 kg

DRUGS (4)
  1. METHOTREXATE 15MG [Suspect]
     Active Substance: METHOTREXATE
     Dates: end: 20210216
  2. CYCLOPHOSPHAMIDE 2510MG [Suspect]
     Active Substance: CYCLOPHOSPHAMIDE
     Dates: end: 20210216
  3. MERCAPTOPURINE 1050MG [Suspect]
     Active Substance: MERCAPTOPURINE
     Dates: end: 20210222
  4. CYTARABINE 752MG [Suspect]
     Active Substance: CYTARABINE
     Dates: end: 20210219

REACTIONS (10)
  - Headache [None]
  - Staphylococcal sepsis [None]
  - Pulmonary embolism [None]
  - Deep vein thrombosis [None]
  - Dysarthria [None]
  - Febrile neutropenia [None]
  - Blood glucose decreased [None]
  - Protein total increased [None]
  - Meningitis [None]
  - Asthenia [None]

NARRATIVE: CASE EVENT DATE: 20210304
